FAERS Safety Report 12582245 (Version 1)
Quarter: 2016Q3

REPORT INFORMATION
  Report Type: Spontaneous
  Country: US (occurrence: US)
  Receive Date: 20160722
  Receipt Date: 20160722
  Transmission Date: 20161109
  Serious: No
  Sender: FDA-Public Use
  Company Number: US-BAYER-2016-136040

PATIENT
  Age: 54 Year
  Sex: Female
  Weight: 63.49 kg

DRUGS (8)
  1. MIRALAX [Suspect]
     Active Substance: POLYETHYLENE GLYCOL 3350
     Indication: CONSTIPATION
     Dosage: 1 DF,TABLESPOON ONCE A WEEK OR AT LEAST 2 OR 3 TIMES A MONTH
     Route: 048
     Dates: end: 201512
  2. MIRALAX [Suspect]
     Active Substance: POLYETHYLENE GLYCOL 3350
     Indication: CONSTIPATION
     Dosage: 1 DF,TABLESPOONONCE A WEEK OR AT LEAST 2 OR 3 TIMES A MONTH
     Route: 048
     Dates: end: 201512
  3. VITAMIN E [Concomitant]
     Active Substance: .ALPHA.-TOCOPHEROL
  4. PANTOPRAZOLE [Concomitant]
     Active Substance: PANTOPRAZOLE SODIUM
  5. TRAZODONE [Concomitant]
     Active Substance: TRAZODONE HYDROCHLORIDE
  6. OMEGA 3 [Concomitant]
     Active Substance: OMEGA-3 FATTY ACIDS
  7. MIRALAX [Suspect]
     Active Substance: POLYETHYLENE GLYCOL 3350
     Indication: CONSTIPATION
     Dosage: 1 DF,TABLESPOON ONCE A WEEK OR AT LEAST 2 OR 3 TIMES A MONTH
     Route: 048
     Dates: end: 201512
  8. CENTRUM [MINERALS NOS,VITAMINS NOS] [Concomitant]

REACTIONS (7)
  - Product use issue [None]
  - Expired product administered [None]
  - Constipation [Recovered/Resolved]
  - Joint range of motion decreased [None]
  - Memory impairment [Recovered/Resolved]
  - Dizziness [Recovered/Resolved]
  - Abdominal distension [Recovered/Resolved]
